FAERS Safety Report 7834096-1 (Version None)
Quarter: 2011Q4

REPORT INFORMATION
  Report Type: 
  Country: None (occurrence: None)
  Receive Date: 20111024
  Receipt Date: 20111024
  Transmission Date: 20120403
  Serious: Yes (Hospitalization)
  Sender: FDA-Public Use
  Company Number: None

PATIENT
  Age: 76 Year
  Sex: Male
  Weight: 108.2 kg

DRUGS (10)
  1. OMEPRAZOLE [Concomitant]
  2. COSAMIN DS [Concomitant]
  3. CARVEDILOL [Concomitant]
     Route: 048
  4. POTASSIUM [Concomitant]
  5. VITAMIN D/CALCIUM/MAGNESIUM/ZINC SUPPLEMENT [Concomitant]
  6. DIGOXIN [Concomitant]
  7. LASIX [Concomitant]
  8. LOSARTAN POTASSIUM [Concomitant]
     Route: 048
  9. PRADAXA [Suspect]
     Indication: ATRIAL FIBRILLATION
     Dosage: 150MG
     Route: 048
     Dates: start: 20110922, end: 20111020
  10. ECHINACEA [Concomitant]

REACTIONS (2)
  - ANAEMIA [None]
  - MELAENA [None]
